FAERS Safety Report 4573838-8 (Version None)
Quarter: 2005Q1

REPORT INFORMATION
  Report Type: 
  Country: None (occurrence: None)
  Receive Date: 20050203
  Receipt Date: 20050125
  Transmission Date: 20050727
  Serious: Yes (Hospitalization, Other)
  Sender: FDA-Public Use
  Company Number: MEDI-0002789

PATIENT
  Age: 58 Year
  Sex: Male
  Weight: 119.296 kg

DRUGS (6)
  1. ETHYOL [Suspect]
     Indication: CHEMOTHERAPY
     Dosage: 500 MG, 3 IN 1 WK, SUBCUTANEOUS
     Route: 058
     Dates: start: 20050113, end: 20050124
  2. ETHYOL [Suspect]
     Indication: RADIOTHERAPY
     Dosage: 500 MG, 3 IN 1 WK, SUBCUTANEOUS
     Route: 058
     Dates: start: 20050113, end: 20050124
  3. RADIATION THERAPY [Concomitant]
  4. CISPLATIN [Concomitant]
  5. REGLAN [Concomitant]
  6. ZYRTEC [Concomitant]

REACTIONS (5)
  - CONFUSIONAL STATE [None]
  - HYPOTENSION [None]
  - NAUSEA [None]
  - RASH GENERALISED [None]
  - SEPSIS [None]
